FAERS Safety Report 5466555-3 (Version None)
Quarter: 2007Q3

REPORT INFORMATION
  Report Type: 
  Country: None (occurrence: None)
  Receive Date: 20070820
  Receipt Date: 20070612
  Transmission Date: 20080115
  Serious: No
  Sender: FDA-Public Use
  Company Number: WAES 0706USA02043

PATIENT
  Age: 69 Year
  Sex: Female

DRUGS (7)
  1. JANUVIA [Suspect]
     Indication: DIABETES MELLITUS
     Dosage: 100 MG DAILY PO
     Route: 048
     Dates: start: 20070307
  2. AVANDIA [Concomitant]
  3. GLUCOPHAGE [Concomitant]
  4. PATANOL [Concomitant]
  5. LISINOPRIL [Concomitant]
  6. LORAZEPAM [Concomitant]
  7. PRAVASTATIN SODIUM [Concomitant]

REACTIONS (1)
  - EPISTAXIS [None]
